FAERS Safety Report 22609848 (Version 2)
Quarter: 2023Q4

REPORT INFORMATION
  Report Type: Spontaneous
  Country: GB (occurrence: GB)
  Receive Date: 20230616
  Receipt Date: 20231009
  Transmission Date: 20240109
  Serious: Yes (Other)
  Sender: FDA-Public Use
  Company Number: GB-AUROBINDO-AUR-APL-2023-035499

PATIENT
  Sex: Male

DRUGS (2)
  1. RISPERIDONE [Suspect]
     Active Substance: RISPERIDONE
     Indication: Insomnia
     Dosage: 6 MILLIGRAM, TWO TIMES A DAY
     Route: 048
  2. RISPERIDONE [Suspect]
     Active Substance: RISPERIDONE
     Indication: Schizophrenia

REACTIONS (3)
  - Seizure [Unknown]
  - Akathisia [Unknown]
  - Drug ineffective [Unknown]
